FAERS Safety Report 25202541 (Version 1)
Quarter: 2025Q2

REPORT INFORMATION
  Report Type: Spontaneous
  Country: PA (occurrence: PA)
  Receive Date: 20250416
  Receipt Date: 20250416
  Transmission Date: 20250716
  Serious: Yes (Hospitalization, Other)
  Sender: SANDOZ
  Company Number: PA-002147023-NVSC2020PA273116

PATIENT
  Age: 73 Year
  Sex: Female
  Weight: 64.86 kg

DRUGS (7)
  1. ANASTROZOLE [Suspect]
     Active Substance: ANASTROZOLE
     Indication: Breast cancer
     Route: 065
     Dates: start: 201906
  2. KISQALI [Suspect]
     Active Substance: RIBOCICLIB SUCCINATE
     Dosage: 200 MG, QD (1X200MG)
     Route: 048
  3. KISQALI [Suspect]
     Active Substance: RIBOCICLIB SUCCINATE
     Indication: Breast cancer metastatic
     Dosage: 400 MG, QD
     Route: 048
     Dates: start: 20190601
  4. KISQALI [Suspect]
     Active Substance: RIBOCICLIB SUCCINATE
     Dosage: 400 MG, QD
     Route: 048
     Dates: start: 20190701
  5. KISQALI [Suspect]
     Active Substance: RIBOCICLIB SUCCINATE
     Dosage: 400 MG, QD
     Route: 048
     Dates: start: 20201006, end: 20201006
  6. KISQALI [Suspect]
     Active Substance: RIBOCICLIB SUCCINATE
     Dosage: 400 MG, QD
     Route: 048
     Dates: start: 2019
  7. KISQALI [Suspect]
     Active Substance: RIBOCICLIB SUCCINATE
     Dosage: 600 MG, QD
     Route: 048
     Dates: start: 201906, end: 20201006

REACTIONS (34)
  - Infection [Unknown]
  - Weight decreased [Unknown]
  - Malaise [Unknown]
  - Pyrexia [Unknown]
  - Pneumonia [Unknown]
  - Cough [Unknown]
  - Rales [Unknown]
  - Diarrhoea [Recovering/Resolving]
  - Asthenia [Not Recovered/Not Resolved]
  - Diverticulitis [Unknown]
  - Oropharyngeal blistering [Recovering/Resolving]
  - Syncope [Unknown]
  - Thrombosis [Unknown]
  - Neutropenia [Unknown]
  - Breast cancer recurrent [Unknown]
  - Haemorrhoids [Unknown]
  - Discomfort [Unknown]
  - Immune system disorder [Recovering/Resolving]
  - Nodule [Unknown]
  - Oral mucosal blistering [Recovering/Resolving]
  - Throat irritation [Unknown]
  - Oral pain [Unknown]
  - Haemoglobin decreased [Unknown]
  - Constipation [Unknown]
  - Increased appetite [Unknown]
  - Condition aggravated [Unknown]
  - Peripheral swelling [Unknown]
  - Urinary tract disorder [Unknown]
  - Anxiety [Unknown]
  - Fatigue [Unknown]
  - Weight increased [Unknown]
  - Nausea [Unknown]
  - Pain in extremity [Unknown]
  - Depressed mood [Unknown]

NARRATIVE: CASE EVENT DATE: 20191201
